FAERS Safety Report 6915682-X (Version None)
Quarter: 2010Q3

REPORT INFORMATION
  Report Type: 
  Country: None (occurrence: None)
  Receive Date: 20100810
  Receipt Date: 20100802
  Transmission Date: 20110219
  Serious: Yes (Hospitalization)
  Sender: FDA-Public Use
  Company Number: DE-ABBOTT-10P-062-0653539-00

PATIENT
  Sex: Female
  Weight: 135 kg

DRUGS (4)
  1. HUMIRA [Suspect]
     Indication: PSORIATIC ARTHROPATHY
     Dates: end: 20100101
  2. ARAVA [Concomitant]
     Indication: PSORIATIC ARTHROPATHY
     Dates: end: 20100501
  3. NOVAMINSULFON [Concomitant]
     Indication: PRODUCT USED FOR UNKNOWN INDICATION
  4. CORTISON [Concomitant]
     Indication: PRODUCT USED FOR UNKNOWN INDICATION
     Dosage: CORTISON IN KNEE
     Route: 050

REACTIONS (2)
  - JOINT EFFUSION [None]
  - PNEUMONIA [None]
